FAERS Safety Report 7206163-7 (Version None)
Quarter: 2010Q4

REPORT INFORMATION
  Report Type: 
  Country: None (occurrence: None)
  Receive Date: 20101229
  Receipt Date: 20101229
  Transmission Date: 20110411
  Serious: Yes (Other)
  Sender: FDA-Public Use
  Company Number: None

PATIENT
  Age: 59 Year
  Sex: Female
  Weight: 72.5755 kg

DRUGS (3)
  1. LOSARTAN 100MG TEVA 00093-7366-98 [Suspect]
     Indication: PROPHYLAXIS
     Dates: start: 20101201
  2. LOSARTAN 100MG TEVA 00093-7366-98 [Suspect]
     Indication: RENAL DISORDER
     Dates: start: 20101201
  3. COZAAR [Suspect]

REACTIONS (3)
  - ASTHENIA [None]
  - DIZZINESS [None]
  - PRODUCT SUBSTITUTION ISSUE [None]
